FAERS Safety Report 23800029 (Version 1)
Quarter: 2024Q2

REPORT INFORMATION
  Report Type: Spontaneous
  Country: US (occurrence: None)
  Receive Date: 20240429
  Receipt Date: 20240429
  Transmission Date: 20240715
  Serious: Yes (Hospitalization)
  Sender: FDA-Public Use
  Company Number: None

PATIENT
  Age: 43 Year
  Sex: Male

DRUGS (1)
  1. LEMTRADA [Suspect]
     Active Substance: ALEMTUZUMAB
     Indication: Multiple sclerosis
     Dosage: 12 MG
     Dates: start: 20240424, end: 20240424

REACTIONS (9)
  - Chills [None]
  - Tremor [None]
  - Pain [None]
  - Feeling cold [None]
  - Nausea [None]
  - Vomiting [None]
  - Blood pressure increased [None]
  - Heart rate increased [None]
  - Pyrexia [None]

NARRATIVE: CASE EVENT DATE: 20240424
